FAERS Safety Report 13717979 (Version 1)
Quarter: 2017Q3

REPORT INFORMATION
  Report Type: Spontaneous
  Country: JP (occurrence: JP)
  Receive Date: 20170705
  Receipt Date: 20170705
  Transmission Date: 20171127
  Serious: Yes (Other)
  Sender: FDA-Public Use
  Company Number: JP-ELI_LILLY_AND_COMPANY-JP201706012773

PATIENT
  Sex: Female

DRUGS (8)
  1. HUMALOG [Suspect]
     Active Substance: INSULIN LISPRO
     Indication: GESTATIONAL DIABETES
     Dosage: 4 IU, TID
     Route: 064
     Dates: start: 20170413
  2. HUMALOG [Suspect]
     Active Substance: INSULIN LISPRO
     Indication: GESTATIONAL DIABETES
     Dosage: 4 IU, TID
     Route: 064
     Dates: start: 20170413
  3. LEVEMIR [Suspect]
     Active Substance: INSULIN DETEMIR
     Indication: GESTATIONAL DIABETES
     Dosage: 4 IU, DAILY
     Route: 064
     Dates: start: 20170419
  4. HUMALOG [Suspect]
     Active Substance: INSULIN LISPRO
     Dosage: 12-10-12-0
     Route: 064
     Dates: end: 20170521
  5. LEVEMIR [Suspect]
     Active Substance: INSULIN DETEMIR
     Dosage: 10 IU, DAILY
     Route: 064
     Dates: end: 20170521
  6. LEVEMIR [Suspect]
     Active Substance: INSULIN DETEMIR
     Indication: GESTATIONAL DIABETES
     Dosage: 4 IU, DAILY
     Route: 064
     Dates: start: 20170419
  7. LEVEMIR [Suspect]
     Active Substance: INSULIN DETEMIR
     Dosage: 10 IU, DAILY
     Route: 064
     Dates: end: 20170521
  8. HUMALOG [Suspect]
     Active Substance: INSULIN LISPRO
     Dosage: 12-10-12-0
     Route: 064
     Dates: end: 20170521

REACTIONS (2)
  - Foetal exposure during pregnancy [Recovered/Resolved]
  - Breech presentation [Recovered/Resolved]
